FAERS Safety Report 6378484-1 (Version None)
Quarter: 2009Q3

REPORT INFORMATION
  Report Type: 
  Country: None (occurrence: None)
  Receive Date: 20090928
  Receipt Date: 20090916
  Transmission Date: 20100115
  Serious: Yes (Hospitalization)
  Sender: FDA-Public Use
  Company Number: US-BIOGENIDEC-2006BI004665

PATIENT
  Age: 60 Year
  Sex: Female
  Weight: 79 kg

DRUGS (5)
  1. AVONEX [Suspect]
     Indication: MULTIPLE SCLEROSIS
     Route: 030
     Dates: start: 20050917, end: 20060311
  2. AVONEX [Suspect]
     Route: 030
     Dates: start: 20050917, end: 20060311
  3. AVONEX [Suspect]
     Route: 030
     Dates: start: 20060101, end: 20060509
  4. SYNTHROID [Concomitant]
     Indication: HYPOTHYROIDISM
  5. COZAAR [Concomitant]
     Indication: CARDIOMYOPATHY

REACTIONS (6)
  - CARDIAC FAILURE CONGESTIVE [None]
  - CHEST PAIN [None]
  - HYPERTENSION [None]
  - PERICARDIAL HAEMORRHAGE [None]
  - VENTRICULAR EXTRASYSTOLES [None]
  - VIRAL INFECTION [None]
